FAERS Safety Report 6967027-7 (Version None)
Quarter: 2010Q3

REPORT INFORMATION
  Report Type: 
  Country: None (occurrence: None)
  Receive Date: 20100907
  Receipt Date: 20100824
  Transmission Date: 20110219
  Serious: No
  Sender: FDA-Public Use
  Company Number: US-JNJFOC-20100808211

PATIENT
  Sex: Male
  Weight: 101.15 kg

DRUGS (1)
  1. FENTANYL CITRATE [Suspect]
     Indication: BACK PAIN
     Route: 062

REACTIONS (3)
  - PRODUCT ADHESION ISSUE [None]
  - PRODUCT OUTER PACKAGING ISSUE [None]
  - WRONG TECHNIQUE IN DRUG USAGE PROCESS [None]
